FAERS Safety Report 19766897 (Version 2)
Quarter: 2021Q3

REPORT INFORMATION
  Report Type: Report from Study
  Country: None (occurrence: US)
  Receive Date: 20210831
  Receipt Date: 20210916
  Transmission Date: 20211014
  Serious: Yes (Hospitalization, Congenital Anomaly, Other)
  Sender: FDA-Public Use
  Company Number: US-ABBVIE-21K-163-4056834-00

PATIENT
  Age: 39 Year
  Sex: Male
  Weight: 77.18 kg

DRUGS (3)
  1. HUMIRA [Suspect]
     Active Substance: ADALIMUMAB
     Indication: COLITIS ULCERATIVE
     Route: 058
     Dates: start: 202102, end: 202106
  2. HUMIRA [Suspect]
     Active Substance: ADALIMUMAB
     Route: 058
     Dates: start: 2021
  3. PREDNISONE. [Concomitant]
     Active Substance: PREDNISONE
     Indication: PRODUCT USED FOR UNKNOWN INDICATION

REACTIONS (9)
  - Incorrect dose administered [Unknown]
  - Needle issue [Unknown]
  - Transfusion [Recovering/Resolving]
  - Injection site pain [Unknown]
  - Colonic abscess [Recovering/Resolving]
  - Wrong technique in product usage process [Unknown]
  - Colitis ulcerative [Recovering/Resolving]
  - Infected fistula [Recovering/Resolving]
  - Abscess intestinal [Recovering/Resolving]

NARRATIVE: CASE EVENT DATE: 20210409
